FAERS Safety Report 17471827 (Version 6)
Quarter: 2021Q4

REPORT INFORMATION
  Report Type: Report from Study
  Country: US (occurrence: US)
  Receive Date: 20200228
  Receipt Date: 20211007
  Transmission Date: 20220303
  Serious: Yes (Death, Hospitalization, Other)
  Sender: FDA-Public Use
  Company Number: US-ACADIA PHARMACEUTICALS INC.-ACA-2019-014485

PATIENT
  Age: 63 Year
  Sex: Female

DRUGS (2)
  1. NUPLAZID [Suspect]
     Active Substance: PIMAVANSERIN TARTRATE
     Indication: Parkinson^s disease
     Dosage: 34 MG, QD
     Route: 048
     Dates: start: 20190927, end: 2019
  2. NUPLAZID [Suspect]
     Active Substance: PIMAVANSERIN TARTRATE
     Dosage: 34 MG, QD
     Route: 048
     Dates: start: 20191003

REACTIONS (18)
  - Death [Fatal]
  - Appendicitis [Unknown]
  - Abnormal behaviour [Unknown]
  - Stubbornness [Unknown]
  - Illusion [Unknown]
  - Soliloquy [Unknown]
  - Hot flush [Unknown]
  - Alopecia [Unknown]
  - Sleep disorder [Unknown]
  - Dyspnoea [Unknown]
  - Hallucination [Unknown]
  - Hallucination [Unknown]
  - Hallucinations, mixed [Not Recovered/Not Resolved]
  - Hallucination [Unknown]
  - Hallucination [Unknown]
  - Fall [Unknown]
  - Somnolence [Unknown]
  - Fall [Unknown]

NARRATIVE: CASE EVENT DATE: 20190101
